FAERS Safety Report 4517135-5 (Version None)
Quarter: 2004Q4

REPORT INFORMATION
  Report Type: 
  Country: None (occurrence: None)
  Receive Date: 20041005
  Receipt Date: 20031222
  Transmission Date: 20050328
  Serious: Yes (Other)
  Sender: FDA-Public Use
  Company Number: PHEH2003US04644

PATIENT
  Age: 60 Year
  Sex: Female

DRUGS (1)
  1. ESTALIS COMBIPATCH(ESTRADIOL, NORETHISTERONE ACETATE)TRANS-THERAPEUTIC [Suspect]
     Indication: HORMONE REPLACEMENT THERAPY
     Dosage: 0.05/0.14 MG/DAY, BIW, TRANSDERMAL
     Route: 062
     Dates: start: 20010101

REACTIONS (3)
  - CLUSTER HEADACHE [None]
  - HYPOTENSION [None]
  - METRORRHAGIA [None]
